FAERS Safety Report 14295137 (Version 4)
Quarter: 2018Q1

REPORT INFORMATION
  Report Type: Report from Study
  Country: US (occurrence: US)
  Receive Date: 20171218
  Receipt Date: 20180213
  Transmission Date: 20180509
  Serious: Yes (Hospitalization, Other)
  Sender: FDA-Public Use
  Company Number: US-GILEAD-2017-0310931

PATIENT
  Age: 43 Year
  Sex: Male
  Weight: 66.21 kg

DRUGS (38)
  1. DEXTROSE. [Concomitant]
     Active Substance: DEXTROSE
  2. OXYCODONE [Concomitant]
     Active Substance: OXYCODONE
  3. ADEMPAS [Concomitant]
     Active Substance: RIOCIGUAT
  4. PROTONIX                           /00661201/ [Concomitant]
     Active Substance: OMEPRAZOLE
  5. ORENITRAM [Concomitant]
     Active Substance: TREPROSTINIL
     Indication: PRODUCT USED FOR UNKNOWN INDICATION
     Route: 065
  6. COUMADIN [Concomitant]
     Active Substance: WARFARIN SODIUM
  7. HYDROXYUREA. [Concomitant]
     Active Substance: HYDROXYUREA
  8. PIPERACILLIN AND TAZOBACTAM [Concomitant]
     Active Substance: PIPERACILLIN SODIUM\TAZOBACTAM SODIUM
  9. CALCITROL                          /00508501/ [Concomitant]
     Active Substance: CALCIUM CARBONATE\ERGOCALCIFEROL\RETINOL
  10. PANTOPRAZOLE [Concomitant]
     Active Substance: PANTOPRAZOLE
  11. ALBUMIN (HUMAN) [Concomitant]
     Active Substance: ALBUMIN HUMAN
  12. ANTICOAGULANT SODIUM CITRATE [Concomitant]
     Active Substance: SODIUM CITRATE
  13. RIOCIGUAT [Concomitant]
     Active Substance: RIOCIGUAT
  14. SODIUM CHLORIDE. [Concomitant]
     Active Substance: SODIUM CHLORIDE
  15. LEVETIRACETAM. [Concomitant]
     Active Substance: LEVETIRACETAM
  16. ONDANSETRON HYDROCHLORIDE. [Concomitant]
     Active Substance: ONDANSETRON HYDROCHLORIDE
  17. FOLIC ACID. [Concomitant]
     Active Substance: FOLIC ACID
  18. SENNA                              /00142201/ [Concomitant]
     Active Substance: SENNA LEAF
  19. SILDENAFIL. [Concomitant]
     Active Substance: SILDENAFIL
  20. QUETIAPINE. [Concomitant]
     Active Substance: QUETIAPINE
  21. MACITENTAN [Concomitant]
     Active Substance: MACITENTAN
  22. AMBRISENTAN [Suspect]
     Active Substance: AMBRISENTAN
     Indication: PRODUCT USED FOR UNKNOWN INDICATION
     Dosage: 10 MG, QD
     Route: 048
     Dates: start: 20140211
  23. OPSUMIT [Concomitant]
     Active Substance: MACITENTAN
     Dosage: UNK
  24. LASIX [Concomitant]
     Active Substance: FUROSEMIDE
  25. SEROQUEL [Concomitant]
     Active Substance: QUETIAPINE FUMARATE
  26. KEPPRA [Concomitant]
     Active Substance: LEVETIRACETAM
  27. PENICILINA                         /00000901/ [Concomitant]
  28. HYDROCERIN [Concomitant]
  29. CALCITRIOL. [Concomitant]
     Active Substance: CALCITRIOL
  30. FAMOTIDINE. [Concomitant]
     Active Substance: FAMOTIDINE
  31. MORPHINE [Concomitant]
     Active Substance: MORPHINE
  32. POLYETHYLENE GLYCOL [Concomitant]
     Active Substance: POLYETHYLENE GLYCOLS
  33. SENNOSIDES A+B [Concomitant]
     Active Substance: SENNOSIDES A AND B
  34. GLUCAGON EMERGENCY KIT [Concomitant]
     Active Substance: GLUCAGON
  35. FENTANYL. [Concomitant]
     Active Substance: FENTANYL
  36. DOCUSATE SODIUM. [Concomitant]
     Active Substance: DOCUSATE SODIUM
  37. MIDODRINE [Concomitant]
     Active Substance: MIDODRINE
  38. GLUTOSE [Concomitant]
     Active Substance: DEXTROSE

REACTIONS (10)
  - Deep vein thrombosis [Unknown]
  - Sickle cell anaemia with crisis [Unknown]
  - Malnutrition [Unknown]
  - Pulmonary embolism [Unknown]
  - Pulmonary arterial hypertension [Unknown]
  - Chronic kidney disease [Unknown]
  - Depression [Unknown]
  - Acute respiratory failure [Unknown]
  - Acute kidney injury [Unknown]
  - Tricuspid valve incompetence [Unknown]

NARRATIVE: CASE EVENT DATE: 20171221
